FAERS Safety Report 14659596 (Version 1)
Quarter: 2018Q1

REPORT INFORMATION
  Report Type: Spontaneous
  Country: US (occurrence: US)
  Receive Date: 20180320
  Receipt Date: 20180320
  Transmission Date: 20180509
  Serious: Yes (Other)
  Sender: FDA-Public Use
  Company Number: US-PFIZER INC-2018107256

PATIENT
  Sex: Female
  Weight: 65.77 kg

DRUGS (1)
  1. DIFLUCAN [Suspect]
     Active Substance: FLUCONAZOLE
     Indication: FUNGAL INFECTION
     Dosage: UNK

REACTIONS (4)
  - Hypersensitivity [Unknown]
  - Joint range of motion decreased [Unknown]
  - Thrombocytopenia [Unknown]
  - Fatigue [Unknown]
